FAERS Safety Report 11317496 (Version 1)
Quarter: 2015Q3

REPORT INFORMATION
  Report Type: Spontaneous
  Country: US (occurrence: None)
  Receive Date: 20150727
  Receipt Date: 20150727
  Transmission Date: 20151125
  Serious: Yes (Other)
  Sender: FDA-Public Use
  Company Number: None

PATIENT
  Sex: Male
  Weight: 71.67 kg

DRUGS (2)
  1. CLOMIPRAMINE [Suspect]
     Active Substance: CLOMIPRAMINE
     Indication: OBSESSIVE-COMPULSIVE DISORDER
     Dates: start: 2005, end: 2007
  2. CLOMIPRAMINE [Suspect]
     Active Substance: CLOMIPRAMINE
     Dates: start: 2005, end: 2007

REACTIONS (6)
  - Anxiety [None]
  - Agitation [None]
  - Condition aggravated [None]
  - Product substitution issue [None]
  - Abnormal behaviour [None]
  - Obsessive-compulsive disorder [None]
